FAERS Safety Report 4354548-9 (Version None)
Quarter: 2004Q2

REPORT INFORMATION
  Report Type: 
  Country: None (occurrence: None)
  Receive Date: 20040503
  Receipt Date: 20040419
  Transmission Date: 20050107
  Serious: Yes (Hospitalization, Other)
  Sender: FDA-Public Use
  Company Number: 2004026695

PATIENT
  Age: 76 Year
  Sex: Male

DRUGS (20)
  1. GEODON [Suspect]
     Indication: AGITATION
     Dosage: 40 MG (TWICE A DAY), ORAL
     Route: 048
     Dates: start: 20040410, end: 20040414
  2. DEONPEZIL HYDROCHLORIDE (DONEPEZIL HYDROCHLORIDE) [Suspect]
     Indication: AGITATION
     Dates: start: 20040326
  3. FUROSEMIDE [Concomitant]
  4. AMIODARONE HCL [Concomitant]
  5. RAMIPRIL [Concomitant]
  6. ACETYLSALICYLIC ACID SRT [Concomitant]
  7. GLIPIZIDE [Concomitant]
  8. METOPROLOL SUCCINATE [Concomitant]
  9. CARVEDILOL [Concomitant]
  10. HYDRALAZINE HCL TAB [Concomitant]
  11. HALOPERIDOL [Concomitant]
  12. ALL OTHER THERAPEUTIC PRODUCTS (ALL OTHER THERAPEUTIC PRODUCTS) [Concomitant]
  13. KETAMINE HCL [Concomitant]
  14. METHAZOLAMIDE (METHAZOLAMIDE) [Concomitant]
  15. VICODIN (HYDROCODONE BITARTRATE, PARACTAMOL) [Concomitant]
  16. CEPHALEXIN MONOHYDRATE [Concomitant]
  17. GATIFLOXACIN [Concomitant]
  18. BETAHANECHOL CHLORIDE (BETHANECHOL CHLORIDE) [Concomitant]
  19. SENNA FRUIT (SENNA FRUIT) [Concomitant]
  20. INSULIN [Concomitant]

REACTIONS (24)
  - BLOOD ALBUMIN DECREASED [None]
  - BLOOD CREATININE INCREASED [None]
  - BLOOD GLUCOSE DECREASED [None]
  - BLOOD GLUCOSE INCREASED [None]
  - BLOOD PRESSURE ABNORMAL [None]
  - BLOOD PRESSURE INCREASED [None]
  - BLOOD SODIUM DECREASED [None]
  - BLOOD UREA INCREASED [None]
  - BUNDLE BRANCH BLOCK LEFT [None]
  - COMA [None]
  - CONFUSIONAL STATE [None]
  - CONSTIPATION [None]
  - DIARRHOEA [None]
  - DYSPNOEA [None]
  - ELECTROCARDIOGRAM QT PROLONGED [None]
  - HYPERHIDROSIS [None]
  - HYPOTHERMIA [None]
  - NODAL RHYTHM [None]
  - PALLOR [None]
  - PCO2 DECREASED [None]
  - PUPIL FIXED [None]
  - RESPIRATORY DISORDER [None]
  - WHITE BLOOD CELL COUNT DECREASED [None]
  - WHITE BLOOD CELL COUNT INCREASED [None]
